FAERS Safety Report 6706278-3 (Version None)
Quarter: 2010Q2

REPORT INFORMATION
  Report Type: 
  Country: None (occurrence: None)
  Receive Date: 20100503
  Receipt Date: 20100423
  Transmission Date: 20101027
  Serious: Yes (Other)
  Sender: FDA-Public Use
  Company Number: US-PFIZER INC-2010054467

PATIENT
  Sex: Female
  Weight: 48.98 kg

DRUGS (5)
  1. PROVERA [Suspect]
     Indication: HOT FLUSH
     Dosage: UNK
  2. XANAX [Suspect]
  3. NEURONTIN [Suspect]
  4. PREMARIN [Suspect]
     Indication: HOT FLUSH
  5. EFFEXOR [Suspect]

REACTIONS (7)
  - BLADDER PROLAPSE [None]
  - BLOOD URINE PRESENT [None]
  - BREAST CANCER FEMALE [None]
  - RENAL CYST [None]
  - RIB FRACTURE [None]
  - UTERINE PROLAPSE [None]
  - WEIGHT INCREASED [None]
